FAERS Safety Report 9474645 (Version 3)
Quarter: 2014Q2

REPORT INFORMATION
  Report Type: Report from Study
  Country: JP (occurrence: JP)
  Receive Date: 20130823
  Receipt Date: 20140415
  Transmission Date: 20141212
  Serious: Yes (Other)
  Sender: FDA-Public Use
  Company Number: JP-VERTEX PHARMACEUTICALS INC-2013-009016

PATIENT
  Age: 64 Year
  Sex: Female

DRUGS (25)
  1. VX-950 (TELAPREVIR) [Suspect]
     Indication: CHRONIC HEPATITIS C
     Dosage: 2250 MG, QD
     Route: 048
     Dates: start: 20120606, end: 20120821
  2. VX-950 (TELAPREVIR) [Suspect]
     Dosage: 1500 MG, QD
     Route: 048
     Dates: start: 20120822, end: 20120828
  3. RIBAVIRIN [Suspect]
     Indication: CHRONIC HEPATITIS C
     Dosage: 600 MG, QD
     Route: 048
     Dates: start: 20120606, end: 20120703
  4. RIBAVIRIN [Suspect]
     Dosage: 400 MG, QD
     Route: 048
     Dates: start: 20120704, end: 20120710
  5. RIBAVIRIN [Suspect]
     Dosage: 200 MG, QD
     Route: 048
     Dates: start: 20120711, end: 20120807
  6. RIBAVIRIN [Suspect]
     Dosage: 200 MG, QD
     Route: 048
     Dates: start: 20120808, end: 20120821
  7. RIBAVIRIN [Suspect]
     Dosage: 200 MG, QD
     Route: 048
     Dates: start: 20120905, end: 20120911
  8. RIBAVIRIN [Suspect]
     Dosage: 200 MG, QD
     Route: 048
     Dates: start: 20120912, end: 20120925
  9. RIBAVIRIN [Suspect]
     Dosage: 200 MG, QD
     Route: 048
     Dates: start: 20120926, end: 20121002
  10. RIBAVIRIN [Suspect]
     Dosage: 200 MG AND 400 MG ON ALTERNATE DAYS
     Dates: start: 20121003, end: 20121009
  11. RIBAVIRIN [Suspect]
     Dosage: 400 MG, QD
     Route: 048
     Dates: start: 20121010, end: 20121016
  12. RIBAVIRIN [Suspect]
     Dosage: 600 MG, QD
     Route: 048
     Dates: start: 20121017, end: 20121106
  13. RIBAVIRIN [Suspect]
     Dosage: 400 MG, QD
     Route: 048
     Dates: start: 20121107, end: 20130508
  14. PEGINTERFERON ALFA-2B [Suspect]
     Indication: CHRONIC HEPATITIS C
     Dosage: 1.5 ?G/KG, QW
     Route: 058
     Dates: start: 20120606, end: 20120612
  15. PEGINTERFERON ALFA-2B [Suspect]
     Dosage: 0.75 ?G/KG, QW
     Route: 058
     Dates: start: 20120613, end: 20120619
  16. PEGINTERFERON ALFA-2B [Suspect]
     Dosage: 1.125 ?G/KG, QW
     Route: 058
     Dates: start: 20120620, end: 20120625
  17. PEGINTERFERON ALFA-2B [Suspect]
     Dosage: 1.5 ?G/KG, QW
     Route: 058
     Dates: start: 20120626, end: 20120821
  18. PEGINTERFERON ALFA-2B [Suspect]
     Dosage: 1.125 ?G/KG, QW
     Route: 058
     Dates: start: 20120822, end: 20120904
  19. PEGINTERFERON ALFA-2B [Suspect]
     Dosage: 1.5 ?G/KG, QW
     Route: 058
     Dates: start: 20120905, end: 20121113
  20. PEGINTERFERON ALFA-2B [Suspect]
     Dosage: 1.125 ?G/KG, QW
     Route: 058
     Dates: start: 20121114, end: 20121120
  21. PEGINTERFERON ALFA-2B [Suspect]
     Dosage: 1.5 ?G/KG, QW
     Route: 058
     Dates: start: 20121121, end: 20130508
  22. TAKEPRON [Concomitant]
     Dosage: 15 MG, QD
     Route: 048
     Dates: start: 20120606
  23. TAKEPRON [Concomitant]
     Dosage: 15 MG, QD
     Route: 048
  24. SELBEX [Concomitant]
     Dosage: 50 MG, QD, PRN
     Route: 048
     Dates: start: 20120607
  25. SELBEX [Concomitant]
     Dosage: UNK, PRN
     Route: 048
     Dates: end: 20130604

REACTIONS (1)
  - Neutrophil count decreased [Recovering/Resolving]
